FAERS Safety Report 5876896-3 (Version None)
Quarter: 2008Q3

REPORT INFORMATION
  Report Type: 
  Country: None (occurrence: None)
  Receive Date: 20080910
  Receipt Date: 20080827
  Transmission Date: 20090109
  Serious: Yes (Other)
  Sender: FDA-Public Use
  Company Number: B0536337A

PATIENT
  Sex: Male

DRUGS (1)
  1. DIGIBIND [Suspect]
     Indication: THERAPEUTIC AGENT TOXICITY
     Route: 042
     Dates: start: 20080821, end: 20080821

REACTIONS (2)
  - CARDIOACTIVE DRUG LEVEL INCREASED [None]
  - RENAL IMPAIRMENT [None]
